FAERS Safety Report 9325894 (Version 1)
Quarter: 2013Q2

REPORT INFORMATION
  Report Type: Spontaneous
  Country: US (occurrence: None)
  Receive Date: 20130603
  Receipt Date: 20130603
  Transmission Date: 20140414
  Serious: Yes (Other)
  Sender: FDA-Public Use
  Company Number: None

PATIENT
  Age: 68 Year
  Sex: Female
  Weight: 74.84 kg

DRUGS (5)
  1. XIAFLEX [Suspect]
     Indication: DUPUYTREN^S CONTRACTURE
     Dosage: 1 SHOT
     Dates: start: 20110614
  2. OXYBUTYNIN [Concomitant]
  3. MULTIVITAMINS [Suspect]
  4. CQ10 [Concomitant]
  5. FISH OILS [Concomitant]

REACTIONS (1)
  - Contusion [None]
